FAERS Safety Report 18287223 (Version 1)
Quarter: 2020Q3

REPORT INFORMATION
  Report Type: Spontaneous
  Country: JP (occurrence: JP)
  Receive Date: 20200921
  Receipt Date: 20200921
  Transmission Date: 20201103
  Serious: Yes (Hospitalization)
  Sender: FDA-Public Use
  Company Number: JP-009507513-2009JPN007525

PATIENT
  Age: 65 Year
  Sex: Male

DRUGS (1)
  1. REFLEX [Suspect]
     Active Substance: MIRTAZAPINE
     Dosage: UNKNOWN
     Route: 048

REACTIONS (1)
  - Hypoglycaemia [Unknown]
